FAERS Safety Report 9071178 (Version 2)
Quarter: 2013Q2

REPORT INFORMATION
  Report Type: Spontaneous
  Country: BR (occurrence: BR)
  Receive Date: 20130206
  Receipt Date: 20130416
  Transmission Date: 20140414
  Serious: Yes (Hospitalization)
  Sender: FDA-Public Use
  Company Number: BR-B.I. PHARMACEUTICALS,INC./RIDGEFIELD-2013-BR-00090BR

PATIENT
  Sex: Female
  Weight: 46 kg

DRUGS (5)
  1. SPIRIVA RESPIMAT [Suspect]
     Indication: CHRONIC OBSTRUCTIVE PULMONARY DISEASE
     Dosage: 5 MCG
     Route: 055
     Dates: start: 2011, end: 2012
  2. SPIRIVA RESPIMAT [Suspect]
     Indication: DYSPNOEA
     Dosage: 5 MCG
     Route: 055
     Dates: start: 201301
  3. SPIRIVA RESPIMAT [Suspect]
     Indication: EMPHYSEMA
  4. ALENIA [Concomitant]
     Indication: CHRONIC OBSTRUCTIVE PULMONARY DISEASE
     Dates: start: 2006, end: 20130122
  5. FENOTEROL [Concomitant]
     Indication: EMPHYSEMA

REACTIONS (3)
  - Pneumonia [Recovered/Resolved]
  - Drug ineffective [Not Recovered/Not Resolved]
  - Obstructive airways disorder [Not Recovered/Not Resolved]
